FAERS Safety Report 16724394 (Version 2)
Quarter: 2019Q4

REPORT INFORMATION
  Report Type: Spontaneous
  Country: US (occurrence: US)
  Receive Date: 20190821
  Receipt Date: 20191202
  Transmission Date: 20200122
  Serious: Yes (Other)
  Sender: FDA-Public Use
  Company Number: US-PFIZER INC-2019356825

PATIENT
  Sex: Female

DRUGS (2)
  1. PHENYTOIN. [Suspect]
     Active Substance: PHENYTOIN
     Dosage: 2 DF, 1X/DAY (TAKE 2 OF THEM A DAY)
  2. PHENYTOIN. [Suspect]
     Active Substance: PHENYTOIN
     Indication: SEIZURE
     Dosage: UNK, UNK (3 OR 4 OF THEM IN A WEEK)

REACTIONS (5)
  - Feeling jittery [Unknown]
  - Drug ineffective [Unknown]
  - Seizure [Unknown]
  - Tremor [Unknown]
  - Nervousness [Unknown]
